FAERS Safety Report 9378261 (Version 2)
Quarter: 2013Q3

REPORT INFORMATION
  Report Type: Spontaneous
  Country: US (occurrence: US)
  Receive Date: 20130701
  Receipt Date: 20130719
  Transmission Date: 20140515
  Serious: Yes (Other)
  Sender: FDA-Public Use
  Company Number: US-GILEAD-2013-0078132

PATIENT
  Sex: Female

DRUGS (2)
  1. LETAIRIS [Suspect]
     Indication: PULMONARY HYPERTENSION
     Dosage: 5 MG, QD
     Dates: start: 20130313
  2. LETAIRIS [Suspect]
     Indication: SARCOIDOSIS

REACTIONS (2)
  - Renal transplant [Unknown]
  - Dialysis [Not Recovered/Not Resolved]
